FAERS Safety Report 4359155-X (Version None)
Quarter: 2004Q2

REPORT INFORMATION
  Report Type: 
  Country: None (occurrence: None)
  Receive Date: 20040512
  Receipt Date: 20030625
  Transmission Date: 20050107
  Serious: Yes (Other)
  Sender: FDA-Public Use
  Company Number: EMADSS2003003912

PATIENT
  Age: 77 Year
  Sex: Female

DRUGS (6)
  1. CISAPRIDE (CISAPRIDE) TABLETS [Suspect]
     Indication: IMPAIRED GASTRIC EMPTYING
     Dosage: 10 MG, 2 IN 1 DAY, ORAL
     Route: 048
     Dates: start: 20030115, end: 20030409
  2. CISAPRIDE (CISAPRIDE) TABLETS [Suspect]
     Indication: POST PROCEDURAL COMPLICATION
     Dosage: 10 MG, 2 IN 1 DAY, ORAL
     Route: 048
     Dates: start: 20030115, end: 20030409
  3. LOSEC (OMEPRAZOLE) [Concomitant]
  4. THYROXINE (LEVOTHYROXINE SODIUM) [Concomitant]
  5. CARVEDILOL [Concomitant]
  6. CARDIO ASPIRIN (ALL OTHER THERAPEUTIC PRODUCTS) [Concomitant]

REACTIONS (2)
  - BLOOD MAGNESIUM INCREASED [None]
  - ELECTROCARDIOGRAM QT CORRECTED INTERVAL PROLONGED [None]
